FAERS Safety Report 14060876 (Version 3)
Quarter: 2018Q1

REPORT INFORMATION
  Report Type: Spontaneous
  Country: AU (occurrence: AU)
  Receive Date: 20171009
  Receipt Date: 20180306
  Transmission Date: 20180508
  Serious: Yes (Death, Other)
  Sender: FDA-Public Use
  Company Number: PHHY2017AU147692

PATIENT
  Sex: Female

DRUGS (11)
  1. AZACITIDINE. [Suspect]
     Active Substance: AZACITIDINE
     Indication: ACUTE LEUKAEMIA
     Dosage: UNK
     Route: 042
     Dates: start: 20140909
  2. CYTARABINE. [Suspect]
     Active Substance: CYTARABINE
     Indication: ACUTE LEUKAEMIA
     Dosage: 100 MG/M2, QD (DAY 1 - 7 )
     Route: 042
     Dates: start: 20140425
  3. VORICONAZOLE. [Suspect]
     Active Substance: VORICONAZOLE
     Dosage: UNK
     Route: 065
     Dates: start: 20140507
  4. LENALIDOMIDE [Suspect]
     Active Substance: LENALIDOMIDE
     Indication: ACUTE LEUKAEMIA
     Dosage: UNK
     Route: 042
     Dates: start: 20140909
  5. IMATINIB [Suspect]
     Active Substance: IMATINIB
     Indication: ACUTE LEUKAEMIA
     Dosage: 400 MG, QD
     Route: 065
     Dates: start: 20140507
  6. VORICONAZOLE. [Suspect]
     Active Substance: VORICONAZOLE
     Indication: PRODUCT USED FOR UNKNOWN INDICATION
     Dosage: UNK
     Route: 065
     Dates: start: 20140425
  7. POSACONAZOLE [Suspect]
     Active Substance: POSACONAZOLE
     Indication: PRODUCT USED FOR UNKNOWN INDICATION
     Dosage: UNK
     Route: 065
     Dates: start: 20140425
  8. POSACONAZOLE [Suspect]
     Active Substance: POSACONAZOLE
     Dosage: UNK
     Route: 065
     Dates: start: 20140507
  9. IDARUBICIN [Suspect]
     Active Substance: IDARUBICIN
     Indication: ACUTE LEUKAEMIA
     Dosage: 12 MG/M2, QD (DAY 1 - 3)
     Route: 042
     Dates: start: 20140425
  10. VORICONAZOLE. [Suspect]
     Active Substance: VORICONAZOLE
     Dosage: UNK
     Route: 065
     Dates: start: 20140909
  11. POSACONAZOLE [Suspect]
     Active Substance: POSACONAZOLE
     Dosage: UNK
     Route: 065
     Dates: start: 20140909

REACTIONS (3)
  - Acute myeloid leukaemia recurrent [Not Recovered/Not Resolved]
  - Death [Fatal]
  - Drug effect incomplete [Unknown]
